FAERS Safety Report 12271506 (Version 3)
Quarter: 2016Q4

REPORT INFORMATION
  Report Type: Report from Study
  Country: CN (occurrence: CN)
  Receive Date: 20160415
  Receipt Date: 20161122
  Transmission Date: 20170207
  Serious: Yes (Death, Hospitalization, Other)
  Sender: FDA-Public Use
  Company Number: PHHY2016CN048827

PATIENT
  Age: 52 Year
  Sex: Female
  Weight: 50 kg

DRUGS (2)
  1. LETROZOLE. [Suspect]
     Active Substance: LETROZOLE
     Indication: BREAST CANCER
     Dosage: 2.5 MG, QD  (1 X DAY)
     Route: 048
     Dates: start: 20151222, end: 20160321
  2. PALBOCICLIB [Suspect]
     Active Substance: PALBOCICLIB
     Indication: BREAST CANCER
     Dosage: 125 MG, QD (1 X DAY)
     Route: 048
     Dates: start: 20151222, end: 20160313

REACTIONS (21)
  - Fatigue [Recovered/Resolved]
  - Liver function test abnormal [Unknown]
  - Metastasis [Unknown]
  - Hypophagia [Unknown]
  - Weight decreased [Unknown]
  - White blood cell count decreased [Recovered/Resolved]
  - Dysphagia [Unknown]
  - Malignant neoplasm progression [Fatal]
  - Drug-induced liver injury [Recovered/Resolved]
  - Mobility decreased [Unknown]
  - Lymphadenopathy [Unknown]
  - Neutrophil count decreased [Recovered/Resolved]
  - Posture abnormal [Unknown]
  - Lymphatic obstruction [Unknown]
  - Pneumonitis [Not Recovered/Not Resolved]
  - Pleural effusion [Unknown]
  - Vascular compression [Unknown]
  - Breast cancer [Fatal]
  - Hepatic neoplasm [Unknown]
  - Platelet count decreased [Recovered/Resolved]
  - Asthenia [Unknown]

NARRATIVE: CASE EVENT DATE: 20160321
